FAERS Safety Report 4369492-0 (Version None)
Quarter: 2004Q2

REPORT INFORMATION
  Report Type: 
  Country: None (occurrence: None)
  Receive Date: 20040527
  Receipt Date: 20040521
  Transmission Date: 20050107
  Serious: Yes (Life-Threatening, Hospitalization)
  Sender: FDA-Public Use
  Company Number: 200417538BWH

PATIENT
  Sex: Male

DRUGS (1)
  1. AVELOX [Suspect]
     Dates: start: 20021101

REACTIONS (6)
  - EYE DISORDER [None]
  - GENITAL ULCERATION [None]
  - MOUTH ULCERATION [None]
  - PAIN OF SKIN [None]
  - RASH MACULO-PAPULAR [None]
  - THERMAL BURN [None]
